FAERS Safety Report 4295092-7 (Version None)
Quarter: 2004Q1

REPORT INFORMATION
  Report Type: 
  Country: None (occurrence: None)
  Receive Date: 20040216
  Receipt Date: 20030617
  Transmission Date: 20041129
  Serious: Yes (Hospitalization, Other)
  Sender: FDA-Public Use
  Company Number: JP-GLAXOSMITHKLINE-B0302466A

PATIENT
  Age: 62 Year
  Sex: Female
  Weight: 47.5 kg

DRUGS (2)
  1. SUMATRIPTAN SUCCINATE [Suspect]
     Indication: MIGRAINE
     Dosage: 50MG PER DAY
     Route: 048
     Dates: start: 20011031, end: 20030515
  2. BROTIZOLAM [Concomitant]
     Indication: INSOMNIA
     Dosage: 250MCG PER DAY
     Route: 048
     Dates: start: 20030308

REACTIONS (3)
  - IDIOPATHIC THROMBOCYTOPENIC PURPURA [None]
  - PLATELET COUNT DECREASED [None]
  - TENDERNESS [None]
